FAERS Safety Report 4661373-8 (Version None)
Quarter: 2005Q2

REPORT INFORMATION
  Report Type: 
  Country: None (occurrence: None)
  Receive Date: 20050512
  Receipt Date: 20050203
  Transmission Date: 20051028
  Serious: Yes (Hospitalization)
  Sender: FDA-Public Use
  Company Number: 05-05-0779

PATIENT
  Age: 69 Year

DRUGS (3)
  1. LISINOPRIL [Suspect]
     Indication: HYPERTENSION
     Dosage: 5MG, ORAL
     Route: 048
     Dates: end: 20041231
  2. IBUPROFEN [Suspect]
     Indication: ARTHRITIS
     Dosage: 400MG ORAL
     Route: 048
     Dates: end: 20041231
  3. BENDROFLUMETHIAZIDE [Concomitant]

REACTIONS (2)
  - REFLUX OESOPHAGITIS [None]
  - RENAL FAILURE ACUTE [None]
